FAERS Safety Report 4622155-6 (Version None)
Quarter: 2005Q1

REPORT INFORMATION
  Report Type: 
  Country: None (occurrence: None)
  Receive Date: 20050329
  Receipt Date: 20050316
  Transmission Date: 20050727
  Serious: Yes (Hospitalization)
  Sender: FDA-Public Use
  Company Number: ZICO001123

PATIENT
  Age: 35 Year
  Sex: Female
  Weight: 70.3075 kg

DRUGS (20)
  1. PRIALT [Suspect]
     Indication: PAIN
     Dosage: 5.00 MCG/HR INTRATHECAL
     Route: 037
     Dates: start: 20040828, end: 20040929
  2. PROVERA [Concomitant]
  3. ALBUTEROL [Concomitant]
  4. SINGULAIR (MONTELUKAST) [Concomitant]
  5. PAXIL [Concomitant]
  6. PRINZIDE (HYDROCHLOROTHIAZIDE) [Concomitant]
  7. INSULIN (INSULIN ZINC SUSPENSION) [Concomitant]
  8. EUTHROID (LEVOTHYROXINE SODIUM) [Concomitant]
  9. PLAVIX [Concomitant]
  10. LASIX [Concomitant]
  11. GABITRIL [Concomitant]
  12. ZYRTEC [Concomitant]
  13. POTASSIUM ACETATE [Concomitant]
  14. ALTACE [Concomitant]
  15. NEXIUM [Concomitant]
  16. BACLOFEN [Concomitant]
  17. VALIUM [Concomitant]
  18. REGLAN [Concomitant]
  19. ZOCOR [Concomitant]
  20. ZELNORM [Concomitant]

REACTIONS (12)
  - AGITATION [None]
  - ANXIETY [None]
  - CONFUSIONAL STATE [None]
  - DECREASED APPETITE [None]
  - DIFFICULTY IN WALKING [None]
  - DYSARTHRIA [None]
  - INFECTED SKIN ULCER [None]
  - MENTAL STATUS CHANGES [None]
  - MUSCLE SPASMS [None]
  - PAIN [None]
  - SLEEP DISORDER [None]
  - TREMOR [None]
